FAERS Safety Report 6810506-3 (Version None)
Quarter: 2010Q2

REPORT INFORMATION
  Report Type: 
  Country: None (occurrence: None)
  Receive Date: 20100630
  Receipt Date: 20100624
  Transmission Date: 20101027
  Serious: Yes (Hospitalization)
  Sender: FDA-Public Use
  Company Number: JP-PFIZER INC-2010079194

PATIENT

DRUGS (1)
  1. AZULFIDINE [Suspect]
     Route: 048

REACTIONS (1)
  - PNEUMONIA [None]
